FAERS Safety Report 22116332 (Version 1)
Quarter: 2023Q1

REPORT INFORMATION
  Report Type: Spontaneous
  Country: DK (occurrence: DK)
  Receive Date: 20230320
  Receipt Date: 20230320
  Transmission Date: 20230417
  Serious: Yes (Life-Threatening)
  Sender: FDA-Public Use
  Company Number: None

PATIENT
  Age: 3 Year
  Sex: Female

DRUGS (2)
  1. DEXTROSE [Suspect]
     Active Substance: DEXTROSE
     Indication: Hypoglycaemia
     Dosage: DOSAGE: INFUSION 12 ML/HOUR. STRENGTH: 100 MG/ML.?STARTED LATER THAN BENELYTE ^FRESENIUS KABI^?ROA-2
     Route: 042
     Dates: start: 20230224, end: 20230225
  2. CALCIUM CHLORIDE\DEXTROSE\MAGNESIUM CHLORIDE\POTASSIUM CHLORIDE\SODIUM [Suspect]
     Active Substance: CALCIUM CHLORIDE\DEXTROSE\MAGNESIUM CHLORIDE\POTASSIUM CHLORIDE\SODIUM ACETATE\SODIUM CHLORIDE
     Indication: Hypoglycaemia
     Dosage: UNKNOWN DOSE. UNKNOWN STRENGTH (55.5 MMOL/L GLUCOSE).?STARTED BEFORE GLUCOS ^FRESENIUS KABI^.
     Route: 042
     Dates: start: 20230224, end: 20230225

REACTIONS (1)
  - Hyponatraemia [Recovered/Resolved]

NARRATIVE: CASE EVENT DATE: 20230225
